FAERS Safety Report 4437592-2 (Version None)
Quarter: 2004Q3

REPORT INFORMATION
  Report Type: 
  Country: None (occurrence: None)
  Receive Date: 20040827
  Receipt Date: 20040817
  Transmission Date: 20050211
  Serious: Yes (Hospitalization)
  Sender: FDA-Public Use
  Company Number: 2004228988FR

PATIENT
  Age: 34 Year
  Sex: Female

DRUGS (3)
  1. CAMPTOSAR [Suspect]
     Indication: COLON CANCER METASTATIC
     Dosage: 390 MG, CYCLIC, IV
     Route: 042
     Dates: start: 20030402, end: 20040324
  2. CALCIUM FOLINATE (CALCIUM FOLINATE) SOLUTION, STERILE [Suspect]
     Indication: COLON CANCER METASTATIC
     Dosage: 600 MG, CYCLIC, IV
     Route: 042
     Dates: start: 20031020, end: 20031020
  3. FLUOROURACIL [Suspect]
     Indication: COLON CANCER METASTATIC
     Dosage: 1790 MG, CYCLIC, IV
     Route: 042
     Dates: start: 20031020, end: 20031020

REACTIONS (5)
  - ELECTROCARDIOGRAM REPOLARISATION ABNORMALITY [None]
  - ELECTROCARDIOGRAM T WAVE ABNORMAL [None]
  - MYOCARDIAL ISCHAEMIA [None]
  - PAIN IN JAW [None]
  - PERICARDIAL EFFUSION [None]
